FAERS Safety Report 7546720-1 (Version None)
Quarter: 2011Q2

REPORT INFORMATION
  Report Type: 
  Country: None (occurrence: None)
  Receive Date: 20110614
  Receipt Date: 20110524
  Transmission Date: 20111010
  Serious: Yes (Hospitalization)
  Sender: FDA-Public Use
  Company Number: A0889225A

PATIENT
  Sex: Male

DRUGS (18)
  1. FELODIPINE [Concomitant]
  2. BUSPIRONE HCL [Concomitant]
  3. BUSPAR [Concomitant]
  4. METFORMIN HCL [Concomitant]
  5. DEPAKOTE [Concomitant]
  6. ABILIFY [Concomitant]
  7. GLYBURIDE [Concomitant]
  8. COMBIVENT [Concomitant]
  9. SINGULAIR [Concomitant]
  10. RABEPRAZOLE SODIUM [Concomitant]
  11. POTASSIUM CHLORIDE [Concomitant]
  12. PREDNISONE [Concomitant]
  13. LISINOPRIL [Concomitant]
  14. AVANDIA [Suspect]
     Dosage: 4MG PER DAY
     Route: 048
     Dates: start: 20000101
  15. TRAZODONE HCL [Concomitant]
  16. LORAZEPAM [Concomitant]
  17. SIMVASTATIN [Concomitant]
  18. PRILOSEC [Concomitant]

REACTIONS (2)
  - CARDIAC FAILURE CONGESTIVE [None]
  - CORONARY ARTERY DISEASE [None]
